FAERS Safety Report 7781482-4 (Version None)
Quarter: 2011Q3

REPORT INFORMATION
  Report Type: 
  Country: None (occurrence: None)
  Receive Date: 20110927
  Receipt Date: 20110415
  Transmission Date: 20111222
  Serious: No
  Sender: FDA-Public Use
  Company Number: US-BAYER-2011-033760

PATIENT
  Sex: Female
  Weight: 118 kg

DRUGS (9)
  1. ALEVE (CAPLET) [Suspect]
     Indication: ARTHRITIS
     Dosage: 2 TABS DAILY
     Route: 048
     Dates: start: 20110414
  2. ASPIRIN [Concomitant]
  3. FUROSEMIDE [Concomitant]
  4. CEPHALEXIN [Concomitant]
  5. LISINOPRIL [Concomitant]
  6. LEVOTHYROXINE SODIUM [Concomitant]
  7. HYDROXYZINE [Concomitant]
  8. POTASSIUM [Concomitant]
  9. CARVEDILOL [Concomitant]

REACTIONS (6)
  - CHEST DISCOMFORT [None]
  - PAIN IN EXTREMITY [None]
  - ABDOMINAL DISTENSION [None]
  - CHEST PAIN [None]
  - LIMB DISCOMFORT [None]
  - ABDOMINAL DISCOMFORT [None]
